FAERS Safety Report 24839210 (Version 1)
Quarter: 2025Q1

REPORT INFORMATION
  Report Type: Spontaneous
  Country: US (occurrence: US)
  Receive Date: 20250114
  Receipt Date: 20250114
  Transmission Date: 20250408
  Serious: Yes (Other)
  Sender: SANOFI AVENTIS
  Company Number: US-SA-2025SA010683

PATIENT
  Age: 70 Year
  Sex: Male

DRUGS (6)
  1. DUPIXENT [Suspect]
     Active Substance: DUPILUMAB
     Indication: Dermatitis atopic
     Route: 058
     Dates: start: 20240418
  2. OZEMPIC [Concomitant]
     Active Substance: SEMAGLUTIDE
  3. CARVEDILOL [Concomitant]
     Active Substance: CARVEDILOL
  4. PIOGLITAZONE [Concomitant]
     Active Substance: PIOGLITAZONE
  5. FINASTERIDE [Concomitant]
     Active Substance: FINASTERIDE
  6. CHLORTHALIDONE [Concomitant]
     Active Substance: CHLORTHALIDONE

REACTIONS (1)
  - Parkinson^s disease [Unknown]

NARRATIVE: CASE EVENT DATE: 20250108
